FAERS Safety Report 20140839 (Version 2)
Quarter: 2021Q4

REPORT INFORMATION
  Report Type: Spontaneous
  Country: US (occurrence: US)
  Receive Date: 20211202
  Receipt Date: 20211221
  Transmission Date: 20220303
  Serious: Yes (Other)
  Sender: FDA-Public Use
  Company Number: US-PFIZER INC-2019424608

PATIENT
  Age: 56 Year
  Sex: Male

DRUGS (4)
  1. RAPAMUNE [Suspect]
     Active Substance: SIROLIMUS
     Dosage: 2 MG, 2X/DAY
     Route: 048
  2. RAPAMUNE [Suspect]
     Active Substance: SIROLIMUS
     Dosage: 4 MG, ALTERNATIVE DAY (2 TABS EVERY OTHER DAY)
     Route: 048
  3. RAPAMUNE [Suspect]
     Active Substance: SIROLIMUS
     Dosage: 2 MG, ALTERNATIVE DAY (1 TAB EVERY OTHER DAY)
     Route: 048
  4. RAPAMUNE [Suspect]
     Active Substance: SIROLIMUS
     Dosage: 2MG TABLET, 1 TABS ORAL BIT X 90 DAY
     Route: 048

REACTIONS (3)
  - Cerebrovascular accident [Unknown]
  - Intentional product misuse [Unknown]
  - Off label use [Unknown]
